FAERS Safety Report 22643225 (Version 1)
Quarter: 2023Q2

REPORT INFORMATION
  Report Type: Spontaneous
  Country: GB (occurrence: GB)
  Receive Date: 20230627
  Receipt Date: 20230627
  Transmission Date: 20230721
  Serious: Yes (Life-Threatening, Hospitalization, Other)
  Sender: FDA-Public Use
  Company Number: GB-JNJFOC-20230660092

PATIENT
  Age: 48 Year
  Sex: Female
  Weight: 57 kg

DRUGS (7)
  1. ACETAMINOPHEN [Suspect]
     Active Substance: ACETAMINOPHEN
     Indication: Analgesic therapy
     Dosage: OR INTRAVENOUSLY (IV) IF NOT TOLERATED ORALLY.?THE PATIENT RECEIVED 26 G OF PARACETAMOL IN THE 240 H
     Route: 048
  2. ACETAMINOPHEN [Suspect]
     Active Substance: ACETAMINOPHEN
     Indication: Analgesic therapy
     Route: 042
  3. RIVAROXABAN [Concomitant]
     Active Substance: RIVAROXABAN
     Indication: Deep vein thrombosis
     Route: 048
  4. FOLIC ACID [Concomitant]
     Active Substance: FOLIC ACID
     Indication: Homocystinuria
     Route: 065
  5. FENTANYL [Concomitant]
     Active Substance: FENTANYL
     Indication: Analgesic therapy
     Route: 065
  6. CYANOCOBALAMIN [Concomitant]
     Active Substance: CYANOCOBALAMIN
     Indication: Homocystinuria
     Route: 065
  7. GABAPENTIN [Concomitant]
     Active Substance: GABAPENTIN
     Indication: Analgesic therapy
     Route: 065

REACTIONS (9)
  - Acute hepatic failure [Recovered/Resolved]
  - Blood homocysteine increased [Recovered/Resolved]
  - Hypermethioninaemia [Recovered/Resolved]
  - Steatohepatitis [Recovered/Resolved]
  - Hepatic steatosis [Recovered/Resolved]
  - Cholestasis [Recovered/Resolved]
  - Toxicity to various agents [Recovered/Resolved]
  - Pulmonary oedema [Recovered/Resolved]
  - Hepatic fibrosis [Recovered/Resolved]
